FAERS Safety Report 11847993 (Version 3)
Quarter: 2016Q1

REPORT INFORMATION
  Report Type: Report from Study
  Country: NL (occurrence: NL)
  Receive Date: 20151217
  Receipt Date: 20160101
  Transmission Date: 20160526
  Serious: Yes (Hospitalization)
  Sender: FDA-Public Use
  Company Number: NL-ABBVIE-15P-114-1517734-00

PATIENT
  Sex: Male

DRUGS (1)
  1. DUODOPA [Suspect]
     Active Substance: CARBIDOPA\LEVODOPA
     Indication: PARKINSON^S DISEASE
     Dosage: GEL 20/5MG/ML, CONTINUOUS
     Route: 050
     Dates: start: 20120410

REACTIONS (7)
  - General physical health deterioration [Not Recovered/Not Resolved]
  - Memory impairment [Not Recovered/Not Resolved]
  - Fall [Not Recovered/Not Resolved]
  - Hypophagia [Not Recovered/Not Resolved]
  - Brain injury [Not Recovered/Not Resolved]
  - Fall [Recovered/Resolved]
  - Fluid intake reduced [Not Recovered/Not Resolved]
